FAERS Safety Report 24371297 (Version 1)
Quarter: 2024Q3

REPORT INFORMATION
  Report Type: Report from Study
  Country: JP (occurrence: JP)
  Receive Date: 20240927
  Receipt Date: 20240927
  Transmission Date: 20241016
  Serious: Yes (Hospitalization)
  Sender: MYLAN
  Company Number: JP-MYLANLABS-2024M1086418

PATIENT
  Age: 42 Year
  Sex: Female

DRUGS (4)
  1. CYCLOSPORINE [Suspect]
     Active Substance: CYCLOSPORINE
     Indication: Aplastic anaemia
     Dosage: 3 MILLIGRAM/KILOGRAM, BID
     Route: 065
  2. IMMUNE GLOBULIN NOS [Suspect]
     Active Substance: IMMUNE GLOBULIN NOS
     Indication: Aplastic anaemia
     Dosage: INITIAL DOSAGE NOT STATED
     Route: 065
  3. IMMUNE GLOBULIN NOS [Suspect]
     Active Substance: IMMUNE GLOBULIN NOS
     Dosage: 2.5 MILLIGRAM/KILOGRAM, QD
     Route: 065
  4. METHYLPREDNISOLONE [Concomitant]
     Active Substance: METHYLPREDNISOLONE
     Indication: Prophylaxis
     Dosage: LATER TAPERED OFF WITHIN ONE MONTH
     Route: 065

REACTIONS (1)
  - Therapy non-responder [Unknown]
